FAERS Safety Report 10614691 (Version 1)
Quarter: 2014Q4

REPORT INFORMATION
  Report Type: Spontaneous
  Country: US (occurrence: US)
  Receive Date: 20141201
  Receipt Date: 20141201
  Transmission Date: 20150529
  Serious: No
  Sender: FDA-Public Use
  Company Number: US-ASTRAZENECA-2014SE89824

PATIENT
  Age: 36 Year
  Sex: Female
  Weight: 77.1 kg

DRUGS (4)
  1. SPIRNOLACTONE [Concomitant]
     Indication: BLOOD PRESSURE ABNORMAL
  2. TOPROL XL [Suspect]
     Active Substance: METOPROLOL SUCCINATE
     Indication: HYPERTENSION
     Route: 048
  3. DIOXAZOSIN MESYLATE [Concomitant]
     Indication: BLOOD PRESSURE ABNORMAL
  4. BISOPROLOL-HCTZ [Concomitant]
     Indication: BLOOD PRESSURE ABNORMAL
     Dosage: 10-6.25 MG; DAILY

REACTIONS (1)
  - Cough [Unknown]
